FAERS Safety Report 7971308-8 (Version None)
Quarter: 2011Q4

REPORT INFORMATION
  Report Type: 
  Country: None (occurrence: None)
  Receive Date: 20111212
  Receipt Date: 20111206
  Transmission Date: 20120403
  Serious: Yes (Hospitalization, Other)
  Sender: FDA-Public Use
  Company Number: PHHY2011LB105829

PATIENT
  Age: 84 Year
  Sex: Male

DRUGS (4)
  1. ZOLEDRONOC ACID [Suspect]
     Route: 042
     Dates: start: 20111124
  2. PRADEXA [Concomitant]
     Dosage: 75 MG, UNK
  3. CATAFLAM [Concomitant]
  4. ZANTAC [Concomitant]

REACTIONS (2)
  - BLOOD CREATININE INCREASED [None]
  - ANURIA [None]
